FAERS Safety Report 5833811-6 (Version None)
Quarter: 2008Q3

REPORT INFORMATION
  Report Type: 
  Country: None (occurrence: None)
  Receive Date: 20080805
  Receipt Date: 20080722
  Transmission Date: 20090109
  Serious: Yes (Death, Life-Threatening, Other)
  Sender: FDA-Public Use
  Company Number: DE-GILEAD-2008-0017381

PATIENT
  Sex: Female
  Weight: 56 kg

DRUGS (2)
  1. TRUVADA [Suspect]
     Indication: HIV INFECTION
     Route: 048
     Dates: start: 20070601, end: 20080401
  2. REYATAZ [Concomitant]
     Indication: HIV INFECTION
     Route: 048
     Dates: start: 20070801, end: 20080401

REACTIONS (6)
  - CROHN'S DISEASE [None]
  - FANCONI SYNDROME ACQUIRED [None]
  - MASS [None]
  - PULMONARY EMBOLISM [None]
  - RENAL FAILURE [None]
  - RESPIRATORY FAILURE [None]
